FAERS Safety Report 6280142-9 (Version None)
Quarter: 2009Q3

REPORT INFORMATION
  Report Type: 
  Country: None (occurrence: None)
  Receive Date: 20090723
  Receipt Date: 20090713
  Transmission Date: 20100115
  Serious: Yes (Hospitalization)
  Sender: FDA-Public Use
  Company Number: PHHY2009AU28680

PATIENT
  Sex: Male

DRUGS (5)
  1. CLOZARIL [Suspect]
     Dosage: 300 MG
     Dates: start: 20080929
  2. CLOZARIL [Suspect]
     Dosage: 325 MG
  3. CLOZARIL [Suspect]
     Dosage: 350 MG
  4. CLOZARIL [Suspect]
     Dosage: 375 MG
  5. CLOZARIL [Suspect]
     Dosage: 350 MG

REACTIONS (1)
  - PSYCHOTIC DISORDER [None]
